FAERS Safety Report 9315749 (Version 2)
Quarter: 2013Q2

REPORT INFORMATION
  Report Type: Spontaneous
  Country: IN (occurrence: IN)
  Receive Date: 20130529
  Receipt Date: 20130626
  Transmission Date: 20140414
  Serious: Yes (Other)
  Sender: FDA-Public Use
  Company Number: IN-PFIZER INC-2013159634

PATIENT
  Age: 53 Year
  Sex: Male

DRUGS (4)
  1. ESCITALOPRAM OXALATE [Suspect]
     Dosage: UNK
  2. PREGABALIN [Suspect]
     Dosage: UNK
  3. CARBAMAZEPINE [Suspect]
     Dosage: UNK
     Route: 065
  4. AMITRIPTYLINE [Suspect]
     Dosage: UNK
     Route: 065

REACTIONS (3)
  - Dementia [Recovering/Resolving]
  - Gait disturbance [Recovering/Resolving]
  - Lethargy [Unknown]
